FAERS Safety Report 24056659 (Version 1)
Quarter: 2024Q3

REPORT INFORMATION
  Report Type: Spontaneous
  Country: CN (occurrence: CN)
  Receive Date: 20240705
  Receipt Date: 20240705
  Transmission Date: 20241016
  Serious: Yes (Hospitalization)
  Sender: ELI LILLY AND CO
  Company Number: CN-ELI_LILLY_AND_COMPANY-CN202406017828

PATIENT
  Age: 33 Year
  Sex: Male
  Weight: 49 kg

DRUGS (5)
  1. ABEMACICLIB [Suspect]
     Active Substance: ABEMACICLIB
     Indication: Breast cancer
     Dosage: 150 MG, DAILY
     Route: 048
     Dates: start: 20240417, end: 20240515
  2. ABEMACICLIB [Suspect]
     Active Substance: ABEMACICLIB
     Indication: Endocrine disorder
  3. AROMASIN [Suspect]
     Active Substance: EXEMESTANE
     Indication: Breast cancer
     Dosage: 25 MG, DAILY
     Route: 048
     Dates: start: 20240417, end: 20240519
  4. AROMASIN [Suspect]
     Active Substance: EXEMESTANE
     Indication: Endocrine disorder
  5. LEUPROLIDE ACETATE [Concomitant]
     Active Substance: ISOPROPYL ALCOHOL\LEUPROLIDE ACETATE
     Indication: Endocrine disorder
     Dosage: UNK, UNKNOWN
     Route: 048

REACTIONS (2)
  - Myelosuppression [Recovering/Resolving]
  - Off label use [Unknown]

NARRATIVE: CASE EVENT DATE: 20240417
